FAERS Safety Report 19888989 (Version 1)
Quarter: 2021Q3

REPORT INFORMATION
  Report Type: Spontaneous
  Country: US (occurrence: US)
  Receive Date: 20210928
  Receipt Date: 20210928
  Transmission Date: 20211014
  Serious: Yes (Other)
  Sender: FDA-Public Use
  Company Number: None

PATIENT
  Age: 57 Year
  Sex: Male

DRUGS (5)
  1. OXYCODONE [Suspect]
     Active Substance: OXYCODONE
     Dosage: ?          OTHER FREQUENCY:EVERY 3 TO 4 HOURS;?
     Route: 048
  2. FUROSEMIDE 20MG [Concomitant]
     Active Substance: FUROSEMIDE
     Dates: start: 20161013
  3. POTASSIUM CHLORIDE 10MEQ [Concomitant]
     Active Substance: POTASSIUM CHLORIDE
     Dates: start: 20181226
  4. ADMELOG [Concomitant]
     Active Substance: INSULIN LISPRO
     Dates: start: 20191221
  5. ROSUVASTATIN 20MG [Concomitant]
     Active Substance: ROSUVASTATIN
     Dates: start: 20160514

REACTIONS (1)
  - Migraine [None]

NARRATIVE: CASE EVENT DATE: 20210927
